FAERS Safety Report 15093576 (Version 3)
Quarter: 2019Q1

REPORT INFORMATION
  Report Type: Spontaneous
  Country: FR (occurrence: FR)
  Receive Date: 20180629
  Receipt Date: 20190214
  Transmission Date: 20190417
  Serious: Yes (Life-Threatening, Hospitalization, Other)
  Sender: FDA-Public Use
  Company Number: FR-GILEAD-2018-0347435

PATIENT
  Age: 46 Year
  Sex: Female
  Weight: 62 kg

DRUGS (4)
  1. STAGID [Suspect]
     Active Substance: METFORMIN PAMOATE
     Indication: TYPE 2 DIABETES MELLITUS
     Dosage: 2 DF, QD
     Route: 048
     Dates: start: 201802
  2. EPCLUSA [Suspect]
     Active Substance: SOFOSBUVIR\VELPATASVIR
     Indication: HEPATITIS C
     Dosage: 1 DF, QD
     Route: 048
     Dates: start: 20171211, end: 201803
  3. STRIBILD [Suspect]
     Active Substance: COBICISTAT\ELVITEGRAVIR\EMTRICITABINE\TENOFOVIR DISOPROXIL FUMARATE
     Indication: HIV TEST POSITIVE
     Dosage: UNK
     Route: 048
     Dates: start: 201604
  4. STRIBILD [Suspect]
     Active Substance: COBICISTAT\ELVITEGRAVIR\EMTRICITABINE\TENOFOVIR DISOPROXIL FUMARATE
     Route: 048
     Dates: start: 201604

REACTIONS (9)
  - Asthenia [Not Recovered/Not Resolved]
  - Hyperthyroidism [Unknown]
  - Cough [Not Recovered/Not Resolved]
  - Left ventricular failure [Not Recovered/Not Resolved]
  - Congestive cardiomyopathy [Not Recovered/Not Resolved]
  - Pleural effusion [Not Recovered/Not Resolved]
  - Cardiac failure [Unknown]
  - Dyspnoea [Not Recovered/Not Resolved]
  - Chest pain [Not Recovered/Not Resolved]

NARRATIVE: CASE EVENT DATE: 20180205
